FAERS Safety Report 6532298-8 (Version None)
Quarter: 2010Q1

REPORT INFORMATION
  Report Type: 
  Country: None (occurrence: None)
  Receive Date: 20100108
  Receipt Date: 20091229
  Transmission Date: 20100710
  Serious: Yes (Hospitalization, Other)
  Sender: FDA-Public Use
  Company Number: FR-ABBOTT-09P-056-0617179-00

PATIENT
  Sex: Female

DRUGS (4)
  1. KALETRA [Suspect]
     Indication: HIV INFECTION
     Route: 048
     Dates: start: 20061228, end: 20090806
  2. TRUVADA [Suspect]
     Indication: HIV INFECTION
     Route: 048
     Dates: start: 20061228, end: 20090806
  3. TENOFOVIR [Concomitant]
     Indication: DRUG USE FOR UNKNOWN INDICATION
  4. INTELENCE [Concomitant]
     Indication: DRUG USE FOR UNKNOWN INDICATION

REACTIONS (18)
  - ANURIA [None]
  - CYTOLYTIC HEPATITIS [None]
  - DEHYDRATION [None]
  - DIARRHOEA [None]
  - FANCONI SYNDROME [None]
  - GASTROINTESTINAL HAEMORRHAGE [None]
  - HEPATITIS CHOLESTATIC [None]
  - LYMPHOPENIA [None]
  - OSTEOMALACIA [None]
  - OVERDOSE [None]
  - PATHOLOGICAL FRACTURE [None]
  - PROCEDURAL PAIN [None]
  - PULMONARY EMBOLISM [None]
  - RECTAL HAEMORRHAGE [None]
  - RENAL FAILURE ACUTE [None]
  - SLEEP DISORDER [None]
  - TOXIC SKIN ERUPTION [None]
  - VENOUS THROMBOSIS [None]
